FAERS Safety Report 14876602 (Version 13)
Quarter: 2019Q3

REPORT INFORMATION
  Report Type: Spontaneous
  Country: IT (occurrence: IT)
  Receive Date: 20180510
  Receipt Date: 20190815
  Transmission Date: 20191004
  Serious: Yes (Hospitalization, Other)
  Sender: FDA-Public Use
  Company Number: IT-PFIZER INC-2018184915

PATIENT
  Age: 58 Year
  Sex: Male

DRUGS (11)
  1. AMIODARONE HCL [Suspect]
     Active Substance: AMIODARONE HYDROCHLORIDE
     Dosage: 20 DF, TOTAL
     Route: 048
     Dates: start: 20180118, end: 20180118
  2. PALEXIA [Suspect]
     Active Substance: TAPENTADOL HYDROCHLORIDE
     Dosage: 80 DF, TOTAL
     Route: 048
     Dates: start: 20180118, end: 20180118
  3. TRIAZOLAM. [Suspect]
     Active Substance: TRIAZOLAM
     Dosage: 20 DF, TOTAL
     Route: 048
     Dates: start: 20180118, end: 20180118
  4. TAMSULOSIN HYDROCHLORIDE. [Concomitant]
     Active Substance: TAMSULOSIN HYDROCHLORIDE
     Indication: BENIGN PROSTATIC HYPERPLASIA
     Dosage: UNK
     Route: 048
  5. ELIQUIS [Suspect]
     Active Substance: APIXABAN
     Dosage: 60 DF, TOTAL
     Route: 048
     Dates: start: 20180118, end: 20180118
  6. HYDROCHLOROTHIAZIDE W/OLMESARTAN MEDOXOMIL [Suspect]
     Active Substance: HYDROCHLOROTHIAZIDE\OLMESARTAN MEDOXOMIL
     Dosage: 64 DF, TOTAL
     Route: 048
     Dates: start: 20180118, end: 20180118
  7. HYDROCHLOROTHIAZIDE. [Suspect]
     Active Substance: HYDROCHLOROTHIAZIDE
     Dosage: 64 DF,TOTAL
     Route: 048
     Dates: start: 20180118, end: 20180118
  8. AMLODIPINE BESILATE [Suspect]
     Active Substance: AMLODIPINE BESYLATE
     Dosage: 14 DF, TOTAL
     Route: 048
     Dates: start: 20180118, end: 20180118
  9. BISOPROLOL HEMIFUMARATE [Suspect]
     Active Substance: BISOPROLOL FUMARATE
     Dosage: 28 DF, TOTAL
     Route: 048
     Dates: start: 20180118, end: 20180118
  10. IDROCLOROTIAZIDE [Suspect]
     Active Substance: HYDROCHLOROTHIAZIDE
     Dosage: 64 DF, TOTAL
     Route: 048
     Dates: start: 20180118, end: 20180118
  11. ATORVASTATIN CALCIUM. [Suspect]
     Active Substance: ATORVASTATIN CALCIUM
     Dosage: 50 DF, TOTAL
     Route: 048
     Dates: start: 20180118, end: 20180118

REACTIONS (4)
  - Intentional overdose [Unknown]
  - Confusional state [Recovering/Resolving]
  - Drug abuse [Unknown]
  - Urinary incontinence [Recovering/Resolving]

NARRATIVE: CASE EVENT DATE: 20180118
